FAERS Safety Report 8269841 (Version 2)
Quarter: 2012Q4

REPORT INFORMATION
  Report Type: 
  Country: US (occurrence: US)
  Receive Date: 20111201
  Receipt Date: 20121226
  Transmission Date: 20130627
  Serious: Yes (Hospitalization)
  Sender: FDA-Public Use
  Company Number: US-BAYER-2011-113905

PATIENT
  Age: 28 Year
  Sex: Female
  Weight: 81.63 kg

DRUGS (12)
  1. YAZ [Suspect]
     Dosage: UNK
     Route: 048
     Dates: start: 200906, end: 201005
  2. GIANVI [Suspect]
     Dosage: UNK
     Dates: start: 201006, end: 20101025
  3. OCELLA [Suspect]
     Indication: PRODUCT USED FOR UNKNOWN INDICATION
     Dosage: UNK
     Route: 048
     Dates: start: 200905, end: 200906
  4. ADVIL [Concomitant]
     Indication: MENSTRUAL CRAMPS
     Dosage: Occasionally
  5. ACYCLOVIR [ACICLOVIR] [Concomitant]
     Indication: HERPES NOS
  6. IMODIUM [Concomitant]
     Indication: DIARRHEA
     Dosage: UNK
     Dates: start: 201010
  7. METHYLPREDNISOLONE [METHYLPREDNISOLONE] [Concomitant]
  8. AZITHROMYCIN [Concomitant]
     Dosage: 250 mg, UNK
  9. LORTAB [Concomitant]
  10. PERCOCET [Concomitant]
  11. PHENERGAN [Concomitant]
  12. COLACE [Concomitant]

REACTIONS (8)
  - Cholecystitis acute [None]
  - Uveitis [None]
  - Injury [None]
  - Pain [None]
  - Abdominal pain [None]
  - Nausea [None]
  - Vomiting [None]
  - Diarrhoea [None]
